FAERS Safety Report 6391524-9 (Version None)
Quarter: 2009Q4

REPORT INFORMATION
  Report Type: 
  Country: None (occurrence: None)
  Receive Date: 20091006
  Receipt Date: 20091006
  Transmission Date: 20100525
  Serious: Yes (Hospitalization)
  Sender: FDA-Public Use
  Company Number: None

PATIENT
  Age: 64 Year
  Sex: Female
  Weight: 77.1115 kg

DRUGS (3)
  1. LEVAQUIN [Suspect]
     Indication: BRONCHITIS
     Dosage: 500MG,850MG,1000MG,  ONE PER DAY TEN DA PO
     Route: 048
     Dates: start: 20040201, end: 20090801
  2. LEVAQUIN [Suspect]
     Indication: DIVERTICULITIS
     Dosage: 500MG,850MG,1000MG,  ONE PER DAY TEN DA PO
     Route: 048
     Dates: start: 20040201, end: 20090801
  3. LEVAQUIN [Suspect]
     Indication: SINUSITIS
     Dosage: 500MG,850MG,1000MG,  ONE PER DAY TEN DA PO
     Route: 048
     Dates: start: 20040201, end: 20090801

REACTIONS (3)
  - EXOSTOSIS [None]
  - TENDON INJURY [None]
  - WEIGHT BEARING DIFFICULTY [None]
